FAERS Safety Report 19138965 (Version 1)
Quarter: 2021Q2

REPORT INFORMATION
  Report Type: Spontaneous
  Country: US (occurrence: US)
  Receive Date: 20210414
  Receipt Date: 20210414
  Transmission Date: 20210717
  Serious: Yes (Hospitalization)
  Sender: FDA-Public Use
  Company Number: None

PATIENT
  Age: 75 Year
  Sex: Female

DRUGS (22)
  1. CIPROFLOXACN [Concomitant]
     Active Substance: CIPROFLOXACIN
     Dates: start: 20210127
  2. METOPROLOL TARTRATE. [Concomitant]
     Active Substance: METOPROLOL TARTRATE
     Dates: start: 20210201
  3. ATORVASTATIN [Concomitant]
     Active Substance: ATORVASTATIN
     Dates: start: 20200121
  4. MIDODRINE [Concomitant]
     Active Substance: MIDODRINE
     Dates: start: 20201002
  5. CLORAZ [Concomitant]
     Dates: start: 20210302
  6. RESTASIS [Concomitant]
     Active Substance: CYCLOSPORINE
     Dates: start: 20210406
  7. FORTEO [Suspect]
     Active Substance: TERIPARATIDE
     Indication: RESPIRATORY DISORDER
     Route: 058
     Dates: start: 20210224
  8. CIPROFLOXACN [Concomitant]
     Active Substance: CIPROFLOXACIN
     Dates: start: 20210127
  9. CARBINOXAMIN [Concomitant]
     Dates: start: 20210223
  10. RESTASIS [Concomitant]
     Active Substance: CYCLOSPORINE
     Dates: start: 20210331
  11. PRIMIDONE. [Concomitant]
     Active Substance: PRIMIDONE
     Dates: start: 20201215
  12. ATORVASTATIN [Concomitant]
     Active Substance: ATORVASTATIN
     Dates: start: 20210129
  13. CLORAZ [Concomitant]
     Dates: start: 20210303
  14. TOPIRAMATE. [Concomitant]
     Active Substance: TOPIRAMATE
     Dates: start: 20210331
  15. FUROSEMIDE. [Concomitant]
     Active Substance: FUROSEMIDE
     Dates: start: 20210406
  16. IPRATROPIUM [Concomitant]
     Active Substance: IPRATROPIUM
     Dates: start: 20210311
  17. METOPROLOL TARTRATE. [Concomitant]
     Active Substance: METOPROLOL TARTRATE
     Dates: start: 20201016
  18. RESTASIS [Concomitant]
     Active Substance: CYCLOSPORINE
     Dates: start: 20210301
  19. MIDODRINE [Concomitant]
     Active Substance: MIDODRINE
     Dates: start: 20210401
  20. MIDODRINE [Concomitant]
     Active Substance: MIDODRINE
     Dates: start: 20210331
  21. METOPROLOL TARTRATE. [Concomitant]
     Active Substance: METOPROLOL TARTRATE
     Dates: start: 20201102
  22. RESTASIS [Concomitant]
     Active Substance: CYCLOSPORINE
     Dates: start: 20210228

REACTIONS (2)
  - Therapy interrupted [None]
  - Cerebrovascular accident [None]

NARRATIVE: CASE EVENT DATE: 20210414
